FAERS Safety Report 7973078-6 (Version None)
Quarter: 2011Q4

REPORT INFORMATION
  Report Type: 
  Country: None (occurrence: None)
  Receive Date: 20111213
  Receipt Date: 20111209
  Transmission Date: 20120403
  Serious: Yes (Other)
  Sender: FDA-Public Use
  Company Number: US-B.I. PHARMACEUTICALS,INC./RIDGEFIELD-2011-BP-27796BP

PATIENT
  Sex: Female

DRUGS (5)
  1. DILANTIN [Concomitant]
     Indication: CONVULSION
     Dosage: 400 MG
     Route: 048
     Dates: start: 20050101
  2. SPIRIVA [Suspect]
     Indication: CHRONIC OBSTRUCTIVE PULMONARY DISEASE
     Dosage: 18 MCG
     Route: 055
  3. XANAX [Concomitant]
     Indication: ANXIETY
  4. OXYCODONE HCL [Concomitant]
     Indication: PAIN
     Dosage: 120 MG
     Route: 048
  5. KLONOPIN [Concomitant]
     Indication: ANXIETY

REACTIONS (1)
  - CONVULSION [None]
